FAERS Safety Report 23038027 (Version 2)
Quarter: 2023Q4

REPORT INFORMATION
  Report Type: Spontaneous
  Country: MY (occurrence: MY)
  Receive Date: 20231006
  Receipt Date: 20231009
  Transmission Date: 20240109
  Serious: Yes (Life-Threatening, Hospitalization, Other)
  Sender: FDA-Public Use
  Company Number: MY-MLMSERVICE-20230922-4562889-1

PATIENT
  Age: 20 Year
  Sex: Female

DRUGS (2)
  1. MISOPROSTOL [Suspect]
     Active Substance: MISOPROSTOL
     Dosage: 6 DF (200 MCG EACH)
     Route: 048
  2. MISOPROSTOL [Suspect]
     Active Substance: MISOPROSTOL
     Dosage: 1 DF
     Route: 067

REACTIONS (3)
  - Uterine malposition [Recovered/Resolved]
  - Exposure during pregnancy [Unknown]
  - Off label use [Unknown]
